FAERS Safety Report 14673437 (Version 1)
Quarter: 2018Q1

REPORT INFORMATION
  Report Type: Spontaneous
  Country: US (occurrence: US)
  Receive Date: 20180323
  Receipt Date: 20180323
  Transmission Date: 20180509
  Serious: Yes (Other)
  Sender: FDA-Public Use
  Company Number: US-BRACCO-2018US01305

PATIENT
  Age: 48 Year
  Sex: Male

DRUGS (1)
  1. ISOVUE 370 [Suspect]
     Active Substance: IOPAMIDOL
     Indication: CATHETERISATION CARDIAC
     Dosage: UNK UNK, SINGLE
     Dates: start: 20171026, end: 20171026

REACTIONS (4)
  - Chest pain [Recovered/Resolved]
  - Bradycardia [Recovered/Resolved]
  - Air embolism [Recovered/Resolved]
  - Electrocardiogram ST segment elevation [Recovered/Resolved]

NARRATIVE: CASE EVENT DATE: 20171026
